FAERS Safety Report 20909694 (Version 2)
Quarter: 2022Q2

REPORT INFORMATION
  Report Type: Spontaneous
  Country: US (occurrence: US)
  Receive Date: 20220603
  Receipt Date: 20220613
  Transmission Date: 20220721
  Serious: Yes (Life-Threatening, Hospitalization, Other)
  Sender: FDA-Public Use
  Company Number: US-ORGANON-O2206USA000058

PATIENT
  Age: 39 Year
  Sex: Female
  Weight: 70.748 kg

DRUGS (5)
  1. NEXPLANON [Suspect]
     Active Substance: ETONOGESTREL
     Indication: Contraception
     Dosage: 1 IMPLANT, RIGHT ARM
     Route: 059
     Dates: start: 20200605
  2. SLYND [Concomitant]
     Active Substance: DROSPIRENONE
     Dosage: UNK
  3. LAMICTAL [Concomitant]
     Active Substance: LAMOTRIGINE
     Dosage: 150 MILLIGRAM, QD
  4. LITHIUM [Concomitant]
     Active Substance: LITHIUM
     Dosage: 900 MILLIGRAM, QD
  5. PRILOSEC [Concomitant]
     Active Substance: OMEPRAZOLE MAGNESIUM
     Dosage: 20 MILLIGRAM, QD

REACTIONS (6)
  - Ectopic pregnancy [Recovered/Resolved]
  - Unintended pregnancy [Recovered/Resolved]
  - Pain [Unknown]
  - Complication of device insertion [Unknown]
  - Complication associated with device [Not Recovered/Not Resolved]
  - Device issue [Not Recovered/Not Resolved]

NARRATIVE: CASE EVENT DATE: 20200605
